FAERS Safety Report 25682799 (Version 1)
Quarter: 2025Q3

REPORT INFORMATION
  Report Type: Spontaneous
  Country: EU (occurrence: EU)
  Receive Date: 20250814
  Receipt Date: 20250814
  Transmission Date: 20251020
  Serious: Yes (Other)
  Sender: MYLAN
  Company Number: None

PATIENT
  Age: 19 Year
  Sex: Female
  Weight: 57 kg

DRUGS (4)
  1. LYRICA [Suspect]
     Active Substance: PREGABALIN
     Indication: Rhizolysis
  2. CELEBREX [Suspect]
     Active Substance: CELECOXIB
     Indication: Rhizolysis
     Dosage: 200 MILLIGRAM, QD, 200 MG ONCE A DAY FOR 5 DAYS
     Dates: start: 20250705
  3. LANSOPRAZOLE [Suspect]
     Active Substance: LANSOPRAZOLE
     Indication: Rhizolysis
     Dosage: 30 MILLIGRAM, QD, 30 MG ONCE A DAY FOR 30 DAYS
     Dates: start: 20250705
  4. DIAZEPAM [Concomitant]
     Active Substance: DIAZEPAM
     Indication: Torticollis
     Dosage: UNK UNK, QD, ONCE A DAY FOR 5 DAYS
     Dates: start: 20250423, end: 20250427

REACTIONS (16)
  - Hallucination [Recovering/Resolving]
  - Separation anxiety disorder [Recovering/Resolving]
  - Chest discomfort [Recovering/Resolving]
  - Fluid retention [Recovering/Resolving]
  - Amnesia [Recovering/Resolving]
  - Insomnia [Recovering/Resolving]
  - Headache [Recovering/Resolving]
  - Fatigue [Recovering/Resolving]
  - Vision blurred [Recovering/Resolving]
  - Dizziness [Recovering/Resolving]
  - Increased appetite [Recovering/Resolving]
  - Disorientation [Recovering/Resolving]
  - Tremor [Recovering/Resolving]
  - Arthralgia [Recovering/Resolving]
  - Panic attack [Recovering/Resolving]
  - Hyperhidrosis [Recovering/Resolving]

NARRATIVE: CASE EVENT DATE: 20250705
